FAERS Safety Report 18687603 (Version 3)
Quarter: 2021Q1

REPORT INFORMATION
  Report Type: Spontaneous
  Country: US (occurrence: US)
  Receive Date: 20201231
  Receipt Date: 20210318
  Transmission Date: 20210419
  Serious: Yes (Other)
  Sender: FDA-Public Use
  Company Number: US-BAYER-2020-286420

PATIENT
  Age: 56 Year
  Sex: Male

DRUGS (1)
  1. NEXAVAR [Suspect]
     Active Substance: SORAFENIB
     Indication: DESMOID TUMOUR
     Dosage: 400 MG, QD
     Route: 048
     Dates: start: 2019

REACTIONS (15)
  - Walking aid user [Recovering/Resolving]
  - Metatarsalgia [None]
  - Osteoarthritis [None]
  - Arthralgia [Recovering/Resolving]
  - Tendonitis [None]
  - Flank pain [Not Recovered/Not Resolved]
  - Muscle spasms [None]
  - Exostosis [None]
  - Dysphonia [Not Recovered/Not Resolved]
  - Off label use [None]
  - Gait disturbance [Recovering/Resolving]
  - Os trigonum [None]
  - Myalgia [Not Recovered/Not Resolved]
  - Product use in unapproved indication [None]
  - Swelling [Not Recovered/Not Resolved]

NARRATIVE: CASE EVENT DATE: 202007
